FAERS Safety Report 24112915 (Version 1)
Quarter: 2024Q3

REPORT INFORMATION
  Report Type: Spontaneous
  Country: IT (occurrence: IT)
  Receive Date: 20240719
  Receipt Date: 20240719
  Transmission Date: 20241016
  Serious: Yes (Other)
  Sender: GUERBET
  Company Number: None

PATIENT
  Age: 74 Year
  Sex: Male

DRUGS (1)
  1. OPTIRAY [Suspect]
     Active Substance: IOVERSOL
     Indication: Scan with contrast
     Route: 042
     Dates: start: 20240703, end: 20240703

REACTIONS (4)
  - Anaphylactic shock [Recovered/Resolved]
  - Tachycardia [Recovered/Resolved]
  - Respiratory distress [Recovered/Resolved]
  - Hypotension [Recovered/Resolved]

NARRATIVE: CASE EVENT DATE: 20240703
